FAERS Safety Report 4962898-8 (Version None)
Quarter: 2006Q2

REPORT INFORMATION
  Report Type: 
  Country: None (occurrence: None)
  Receive Date: 20060405
  Receipt Date: 20060327
  Transmission Date: 20061013
  Serious: Yes (Death, Hospitalization)
  Sender: FDA-Public Use
  Company Number: US-BRISTOL-MYERS SQUIBB COMPANY-13328018

PATIENT
  Age: 73 Year
  Sex: Male
  Weight: 91 kg

DRUGS (2)
  1. COUMADIN [Suspect]
     Dosage: DURATION: MANY YEARS
     Dates: end: 20060226
  2. PLAVIX [Suspect]
     Dates: end: 20060226

REACTIONS (1)
  - CARDIAC FAILURE CONGESTIVE [None]
